FAERS Safety Report 7482330-2 (Version None)
Quarter: 2011Q2

REPORT INFORMATION
  Report Type: 
  Country: None (occurrence: None)
  Receive Date: 20110516
  Receipt Date: 20110511
  Transmission Date: 20111010
  Serious: No
  Sender: FDA-Public Use
  Company Number: US-PFIZER INC-2011101948

PATIENT
  Sex: Male
  Weight: 86 kg

DRUGS (5)
  1. DILTIAZEM [Concomitant]
     Indication: HYPERTENSION
     Dosage: UNK
  2. WARFARIN [Concomitant]
     Dosage: UNK
  3. OMEPRAZOLE [Concomitant]
     Indication: GASTROOESOPHAGEAL REFLUX DISEASE
     Dosage: 40 MG, UNK
  4. LIPITOR [Concomitant]
     Indication: BLOOD CHOLESTEROL INCREASED
     Dosage: 20 MG, UNK
  5. TIKOSYN [Suspect]
     Indication: ATRIAL FIBRILLATION
     Dosage: 250 MCG, 2X/DAY
     Route: 048
     Dates: start: 20100701

REACTIONS (3)
  - BLOOD CREATININE INCREASED [None]
  - DIZZINESS [None]
  - FATIGUE [None]
